FAERS Safety Report 6134465-4 (Version None)
Quarter: 2009Q1

REPORT INFORMATION
  Report Type: 
  Country: None (occurrence: None)
  Receive Date: 20090327
  Receipt Date: 20090323
  Transmission Date: 20090719
  Serious: Yes (Death, Hospitalization, Other)
  Sender: FDA-Public Use
  Company Number: DK-ASTRAZENECA-2009SE01239

PATIENT
  Age: 284 Day
  Sex: Female

DRUGS (3)
  1. SPIROCORT [Suspect]
     Indication: ASTHMA
     Route: 055
     Dates: start: 20081101
  2. SPIROCORT [Suspect]
     Route: 055
     Dates: start: 20090213
  3. AIROMIR [Suspect]
     Indication: ASTHMA
     Dosage: 1 INHALATION 3 TIMES DAILY
     Dates: start: 20081101

REACTIONS (3)
  - ASTHMA [None]
  - CHOKING [None]
  - DEVICE MISUSE [None]
